FAERS Safety Report 4276589-2 (Version None)
Quarter: 2004Q1

REPORT INFORMATION
  Report Type: 
  Country: None (occurrence: None)
  Receive Date: 20040121
  Receipt Date: 20031118
  Transmission Date: 20041129
  Serious: Yes (Hospitalization)
  Sender: FDA-Public Use
  Company Number: WAES 0311USA02165

PATIENT
  Age: 54 Year
  Sex: Female

DRUGS (3)
  1. [THERAPY UNSPECIFIED] [Concomitant]
  2. PRILOSEC [Concomitant]
  3. VIOXX [Suspect]
     Indication: POSTOPERATIVE ANALGESIA
     Route: 048

REACTIONS (5)
  - DRUG HYPERSENSITIVITY [None]
  - FACE OEDEMA [None]
  - HAEMATEMESIS [None]
  - SWELLING [None]
  - VOMITING [None]
